FAERS Safety Report 8699551 (Version 3)
Quarter: 2013Q3

REPORT INFORMATION
  Report Type: Report from Study
  Country: US (occurrence: US)
  Receive Date: 20120802
  Receipt Date: 20130816
  Transmission Date: 20140515
  Serious: Yes (Hospitalization, Other)
  Sender: FDA-Public Use
  Company Number: US-JNJFOC-20120712951

PATIENT
  Age: 18 Year
  Sex: Female
  Weight: 78.8 kg

DRUGS (4)
  1. REMICADE [Suspect]
     Indication: CROHN^S DISEASE
     Route: 042
     Dates: start: 20060306
  2. METHOTREXATE [Concomitant]
  3. PREDNISONE [Concomitant]
  4. NUVARING [Concomitant]

REACTIONS (1)
  - Ileal stenosis [Recovered/Resolved]
